FAERS Safety Report 7490682-2 (Version None)
Quarter: 2011Q2

REPORT INFORMATION
  Report Type: 
  Country: None (occurrence: None)
  Receive Date: 20110519
  Receipt Date: 20110504
  Transmission Date: 20111010
  Serious: No
  Sender: FDA-Public Use
  Company Number: US-B.I. PHARMACEUTICALS,INC./RIDGEFIELD-2011-BP-12479BP

PATIENT
  Age: 83 Year
  Sex: Female

DRUGS (2)
  1. AGGRENOX [Suspect]
     Indication: TRANSIENT ISCHAEMIC ATTACK
  2. AGGRENOX [Suspect]
     Indication: PROPHYLAXIS

REACTIONS (1)
  - LETHARGY [None]
